FAERS Safety Report 19042107 (Version 2)
Quarter: 2021Q2

REPORT INFORMATION
  Report Type: Report from Study
  Country: BR (occurrence: BR)
  Receive Date: 20210323
  Receipt Date: 20210409
  Transmission Date: 20210717
  Serious: Yes (Other)
  Sender: FDA-Public Use
  Company Number: NVSC2021BR063798

PATIENT
  Sex: Male
  Weight: 72 kg

DRUGS (4)
  1. ZIDER [Concomitant]
     Active Substance: MEMANTINE HYDROCHLORIDE
     Indication: PRODUCT USED FOR UNKNOWN INDICATION
     Dosage: UNK
     Route: 065
     Dates: start: 202101
  2. EBIX [Concomitant]
     Active Substance: MEMANTINE HYDROCHLORIDE
     Indication: DEMENTIA ALZHEIMER^S TYPE
     Dosage: 2 DF, QD
     Route: 048
     Dates: start: 2017
  3. EXELON [Suspect]
     Active Substance: RIVASTIGMINE TARTRATE
     Indication: DEMENTIA ALZHEIMER^S TYPE
     Dosage: 4.6 MG, QD (PATCH 5CM2, 9 MG RIVASTIGMINE BASE)
     Route: 062
     Dates: start: 2017, end: 2018
  4. EXELON [Suspect]
     Active Substance: RIVASTIGMINE TARTRATE
     Indication: DEMENTIA
     Dosage: STARTED 5 YEARS AGO TO 2016 OR 2017
     Route: 065

REACTIONS (11)
  - Cardio-respiratory arrest [Recovered/Resolved]
  - Chronic obstructive pulmonary disease [Not Recovered/Not Resolved]
  - Oropharyngeal cancer [Recovered/Resolved]
  - Loss of consciousness [Recovered/Resolved]
  - Muscle spasms [Recovered/Resolved]
  - Neoplasm malignant [Recovered/Resolved]
  - Syncope [Recovered/Resolved]
  - Hypoxia [Not Recovered/Not Resolved]
  - Immunodeficiency [Unknown]
  - Cardio-respiratory arrest [Recovered/Resolved with Sequelae]
  - H1N1 influenza [Recovered/Resolved]

NARRATIVE: CASE EVENT DATE: 2018
